FAERS Safety Report 16710852 (Version 4)
Quarter: 2022Q2

REPORT INFORMATION
  Report Type: Report from Study
  Country: BR (occurrence: None)
  Receive Date: 20190816
  Receipt Date: 20220604
  Transmission Date: 20220721
  Serious: Yes (Other)
  Sender: FDA-Public Use
  Company Number: BR-ROCHE-2377255

PATIENT
  Age: 78 Year
  Sex: Male
  Weight: 79 kg

DRUGS (6)
  1. VEMURAFENIB [Suspect]
     Active Substance: VEMURAFENIB
     Indication: Metastatic malignant melanoma
     Dosage: 960 MILLIGRAMS (MG) (FOUR, 240 MG TABLETS) AS PER PROTOCOL?DATE OF MOST RECENT DOSE (4 TABLETS) OF
     Route: 048
     Dates: start: 20180130
  2. COBIMETINIB [Suspect]
     Active Substance: COBIMETINIB
     Indication: Metastatic malignant melanoma
     Dosage: 60 MG (THREE, 20 MG TABLETS) AS PER PROTOCOL?DATE OF MOST RECENT DOSE 20 MG OF COBIMETINIB PRIOR TO
     Route: 048
     Dates: start: 20180130
  3. ATEZOLIZUMAB [Suspect]
     Active Substance: ATEZOLIZUMAB
     Indication: Metastatic malignant melanoma
     Dosage: DATE OF MOST RECENT DOSE OF BLINDED ATEZOLIZUMAB PRIOR TO EVENT ONSET: 06/MAR/2018
     Route: 041
     Dates: start: 20180306
  4. ATENOLOL [Concomitant]
     Active Substance: ATENOLOL
     Indication: Hypertension
     Route: 048
     Dates: start: 2006
  5. HYDROCHLOROTHIAZIDE [Concomitant]
     Active Substance: HYDROCHLOROTHIAZIDE
     Indication: Hypertension
     Route: 048
     Dates: start: 2013
  6. BETAMETASON [Concomitant]
     Indication: Dermatitis acneiform
     Dosage: 0.1 OTHER
     Route: 061
     Dates: start: 20190107

REACTIONS (1)
  - Squamous cell carcinoma [Recovered/Resolved]

NARRATIVE: CASE EVENT DATE: 20190723
